FAERS Safety Report 7781053-X (Version None)
Quarter: 2011Q3

REPORT INFORMATION
  Report Type: 
  Country: None (occurrence: None)
  Receive Date: 20110923
  Receipt Date: 20110915
  Transmission Date: 20111222
  Serious: Yes (Hospitalization)
  Sender: FDA-Public Use
  Company Number: DAV-AE-ACY-11-09

PATIENT
  Age: 55 Year
  Sex: Male

DRUGS (3)
  1. MYCOPHENOLATE MOFETIL [Concomitant]
  2. ACYCLOVIR [Suspect]
     Indication: GRAND MAL CONVULSION
     Dosage: 400 MG. TWICE DAILY
  3. CORITCOSTEROIDS [Concomitant]

REACTIONS (3)
  - DRUG INTERACTION [None]
  - NEUROTOXICITY [None]
  - GRAND MAL CONVULSION [None]
